FAERS Safety Report 11630220 (Version 1)
Quarter: 2015Q4

REPORT INFORMATION
  Report Type: Spontaneous
  Country: US (occurrence: US)
  Receive Date: 20151014
  Receipt Date: 20151014
  Transmission Date: 20160304
  Serious: No
  Sender: FDA-Public Use
  Company Number: US-INDIVIOR-RB-080222-2015

PATIENT
  Sex: Female

DRUGS (2)
  1. NOVOCAINE [Suspect]
     Active Substance: PROCAINE
     Indication: DENTAL CARIES
     Dosage: UNKNOWN
     Route: 051
  2. SUBOXONE [Suspect]
     Active Substance: BUPRENORPHINE HYDROCHLORIDE\NALOXONE HYDROCHLORIDE
     Indication: DRUG DEPENDENCE
     Dosage: 8 MG, QD
     Route: 060

REACTIONS (3)
  - Dental caries [Recovered/Resolved]
  - Trismus [Not Recovered/Not Resolved]
  - Pain in jaw [Not Recovered/Not Resolved]

NARRATIVE: CASE EVENT DATE: 201506
